FAERS Safety Report 5736737-1 (Version None)
Quarter: 2008Q2

REPORT INFORMATION
  Report Type: 
  Country: None (occurrence: None)
  Receive Date: 20080513
  Receipt Date: 20080506
  Transmission Date: 20081010
  Serious: Yes (Hospitalization)
  Sender: FDA-Public Use
  Company Number: CHNY2008DE01857

PATIENT
  Sex: Female

DRUGS (1)
  1. VOLTAREN [Suspect]
     Indication: BREAST INFLAMMATION
     Dosage: UNK, UNK
     Route: 061

REACTIONS (2)
  - ERYTHEMA [None]
  - SKIN EXFOLIATION [None]
